FAERS Safety Report 8943584 (Version 1)
Quarter: 2012Q4

REPORT INFORMATION
  Report Type: 
  Country: US (occurrence: US)
  Receive Date: 20121204
  Receipt Date: 20121204
  Transmission Date: 20130627
  Serious: No
  Sender: FDA-Public Use
  Company Number: US-PFIZER INC-2012302045

PATIENT
  Age: 76 Year
  Sex: Male
  Weight: 80.73 kg

DRUGS (1)
  1. INLYTA [Suspect]
     Indication: RENAL CANCER STAGE IV
     Dosage: 5 mg, 2x/day
     Route: 048
     Dates: start: 201207

REACTIONS (2)
  - Onychoclasis [Unknown]
  - Nail disorder [Unknown]
